FAERS Safety Report 6057842-9 (Version None)
Quarter: 2009Q1

REPORT INFORMATION
  Report Type: 
  Country: None (occurrence: None)
  Receive Date: 20090129
  Receipt Date: 20090119
  Transmission Date: 20090719
  Serious: Yes (Hospitalization)
  Sender: FDA-Public Use
  Company Number: US-ELI_LILLY_AND_COMPANY-US200901003047

PATIENT
  Sex: Female

DRUGS (5)
  1. CYMBALTA [Suspect]
     Dosage: 30 MG, DAILY (1/D)
     Dates: start: 20080701
  2. NEURONTIN [Concomitant]
     Indication: TRIGEMINAL NEURALGIA
  3. INSULIN [Concomitant]
  4. LISINOPRIL [Concomitant]
  5. VANCOMYCIN [Concomitant]

REACTIONS (1)
  - LOCALISED INFECTION [None]
